FAERS Safety Report 25613599 (Version 1)
Quarter: 2025Q3

REPORT INFORMATION
  Report Type: Spontaneous
  Country: EU (occurrence: EU)
  Receive Date: 20250728
  Receipt Date: 20250728
  Transmission Date: 20251021
  Serious: Yes (Death, Other)
  Sender: MYLAN
  Company Number: EU-GRUNENTHAL-2025-110195

PATIENT
  Age: 55 Year
  Sex: Female

DRUGS (10)
  1. FENTANYL [Suspect]
     Active Substance: FENTANYL
     Indication: Pain
  2. FENTANYL [Suspect]
     Active Substance: FENTANYL
  3. FENTANYL [Suspect]
     Active Substance: FENTANYL
     Indication: Pain
     Dosage: 400 MICROGRAM, Q3H, EVERY 3 HRS
  4. FENTANYL [Suspect]
     Active Substance: FENTANYL
     Dosage: 400 MICROGRAM, Q6H, EVERY 6 HRS
  5. OXYCODONE [Suspect]
     Active Substance: OXYCODONE
     Indication: Pain
  6. PREGABALIN [Concomitant]
     Active Substance: PREGABALIN
     Indication: Product used for unknown indication
  7. DULOXETINE [Concomitant]
     Active Substance: DULOXETINE
     Indication: Product used for unknown indication
  8. MORPHINE [Concomitant]
     Active Substance: MORPHINE
     Indication: Product used for unknown indication
  9. DEXAMETHASONE [Concomitant]
     Active Substance: DEXAMETHASONE
     Indication: Product used for unknown indication
  10. CLONIDINE [Concomitant]
     Active Substance: CLONIDINE
     Indication: Product used for unknown indication

REACTIONS (6)
  - Death [Fatal]
  - Drug abuse [Unknown]
  - Drug dependence [Unknown]
  - Hyperaesthesia [Unknown]
  - Drug ineffective [Unknown]
  - Overdose [Unknown]
